FAERS Safety Report 5692988-6 (Version None)
Quarter: 2008Q2

REPORT INFORMATION
  Report Type: 
  Country: None (occurrence: None)
  Receive Date: 20080401
  Receipt Date: 20080401
  Transmission Date: 20081010
  Serious: No
  Sender: FDA-Public Use
  Company Number: None

PATIENT
  Age: 50 Year
  Sex: Female
  Weight: 88.4514 kg

DRUGS (1)
  1. CLARITHROMYCIN [Suspect]
     Indication: CYSTITIS
     Dosage: 1/2 TABLET  4 TIMES A DAY
     Dates: start: 20080314, end: 20080317

REACTIONS (3)
  - FLIGHT OF IDEAS [None]
  - INSOMNIA [None]
  - THINKING ABNORMAL [None]
